FAERS Safety Report 21102699 (Version 2)
Quarter: 2022Q3

REPORT INFORMATION
  Report Type: Report from Study
  Country: SK (occurrence: SK)
  Receive Date: 20220720
  Receipt Date: 20220816
  Transmission Date: 20221027
  Serious: Yes (Other)
  Sender: FDA-Public Use
  Company Number: SK-JNJFOC-20220724860

PATIENT
  Age: 71 Year
  Sex: Male

DRUGS (5)
  1. IBRUTINIB [Suspect]
     Active Substance: IBRUTINIB
     Indication: Chronic lymphocytic leukaemia
     Route: 048
     Dates: start: 20170720
  2. IBRUTINIB [Suspect]
     Active Substance: IBRUTINIB
     Route: 048
  3. FLUCONAZOLE [Concomitant]
     Active Substance: FLUCONAZOLE
     Indication: Wound secretion
  4. BANEOCIN [Concomitant]
     Indication: Wound secretion
     Route: 061
  5. CEFIXIME [Concomitant]
     Active Substance: CEFIXIME
     Indication: Wound secretion

REACTIONS (1)
  - Wound secretion [Recovered/Resolved]

NARRATIVE: CASE EVENT DATE: 20220706
